FAERS Safety Report 8639717 (Version 3)
Quarter: 2012Q4

REPORT INFORMATION
  Report Type: Report from Study
  Country: DE (occurrence: DE)
  Receive Date: 20120627
  Receipt Date: 20121113
  Transmission Date: 20130627
  Serious: Yes (Hospitalization, Other)
  Sender: FDA-Public Use
  Company Number: DE-ABBOTT-12P-062-0948559-00

PATIENT
  Age: 33 None
  Sex: Female

DRUGS (4)
  1. HUMIRA 40 MG/0.8 ML PEN [Suspect]
     Indication: CROHN^S DISEASE
     Route: 058
     Dates: start: 20120109, end: 20120601
  2. PANTOVOIGAR [Concomitant]
     Indication: PRODUCT USED FOR UNKNOWN INDICATION
     Route: 048
  3. ANALGETIC DRUG [Concomitant]
     Indication: PRODUCT USED FOR UNKNOWN INDICATION
  4. CORTISONE [Concomitant]
     Indication: CROHN^S DISEASE

REACTIONS (4)
  - Intestinal stenosis [Recovering/Resolving]
  - Postoperative abscess [Recovering/Resolving]
  - Suture related complication [Recovering/Resolving]
  - Gastrointestinal anastomotic leak [Recovering/Resolving]
